FAERS Safety Report 4288412-0 (Version None)
Quarter: 2004Q1

REPORT INFORMATION
  Report Type: 
  Country: None (occurrence: None)
  Receive Date: 20040209
  Receipt Date: 20030930
  Transmission Date: 20041129
  Serious: No
  Sender: FDA-Public Use
  Company Number: US-GLAXOSMITHKLINE-A0428041A

PATIENT
  Age: 42 Year
  Sex: Male

DRUGS (4)
  1. PAXIL [Suspect]
     Dosage: 20MG PER DAY
     Route: 048
     Dates: start: 20030925
  2. XANAX [Concomitant]
  3. HAPONAL [Concomitant]
  4. PRILOSEC [Concomitant]

REACTIONS (4)
  - DISTURBANCE IN SEXUAL AROUSAL [None]
  - FATIGUE [None]
  - SOMNOLENCE [None]
  - YAWNING [None]
